FAERS Safety Report 24540061 (Version 2)
Quarter: 2025Q3

REPORT INFORMATION
  Report Type: Spontaneous
  Country: US (occurrence: US)
  Receive Date: 20241023
  Receipt Date: 20250818
  Transmission Date: 20251021
  Serious: Yes (Other)
  Sender: INSUD PHARMA
  Company Number: US-INSUD PHARMA-2410US07942

PATIENT

DRUGS (1)
  1. TESTOSTERONE [Suspect]
     Active Substance: TESTOSTERONE
     Indication: Transgender hormonal therapy
     Route: 065
     Dates: start: 2009

REACTIONS (11)
  - Idiopathic intracranial hypertension [Unknown]
  - Cerebrospinal fluid leakage [Unknown]
  - Papilloedema [Unknown]
  - Headache [Unknown]
  - Rhinorrhoea [Unknown]
  - Photophobia [Unknown]
  - Dizziness [Unknown]
  - Vision blurred [Unknown]
  - Gait disturbance [Unknown]
  - Nausea [Unknown]
  - Ear discomfort [Unknown]
